FAERS Safety Report 4746141-0 (Version None)
Quarter: 2005Q3

REPORT INFORMATION
  Report Type: 
  Country: None (occurrence: None)
  Receive Date: 20050816
  Receipt Date: 20050801
  Transmission Date: 20060218
  Serious: Yes (Hospitalization)
  Sender: FDA-Public Use
  Company Number: PHFR2005GB02620

PATIENT
  Age: 59 Year
  Sex: Female

DRUGS (3)
  1. DICLOFENAC(DICLOFENAC) [Suspect]
     Indication: ARTHROSCOPY
     Dosage: ORAL
     Route: 048
     Dates: start: 20050709, end: 20050710
  2. ASPIRIN [Suspect]
     Dosage: 300 MG, QD, ORAL
     Route: 048
     Dates: start: 20000101, end: 20050712
  3. TEGRETOL [Concomitant]

REACTIONS (5)
  - ABDOMINAL PAIN [None]
  - DIARRHOEA [None]
  - HAEMATOCHEZIA [None]
  - RASH [None]
  - RECTAL HAEMORRHAGE [None]
